FAERS Safety Report 8916881 (Version 1)
Quarter: 2012Q4

REPORT INFORMATION
  Report Type: 
  Country: IT (occurrence: IT)
  Receive Date: 20121120
  Receipt Date: 20121120
  Transmission Date: 20130627
  Serious: Yes (Hospitalization)
  Sender: FDA-Public Use
  Company Number: IT-ROCHE-1156831

PATIENT
  Age: 82 Year
  Sex: Female

DRUGS (6)
  1. TORADOL [Suspect]
     Indication: PRODUCT USED FOR UNKNOWN INDICATION
     Route: 048
     Dates: start: 20120926, end: 20121025
  2. TICLODONE [Concomitant]
     Route: 048
  3. AXAGON [Concomitant]
     Route: 048
  4. NIMOTOP [Concomitant]
     Route: 065
  5. NIMOTOP [Concomitant]
     Route: 048
  6. NIMOTOP [Concomitant]
     Route: 048

REACTIONS (2)
  - Microcytic anaemia [Recovering/Resolving]
  - Haemorrhage [Recovering/Resolving]
